FAERS Safety Report 7300829-6 (Version None)
Quarter: 2010Q4

REPORT INFORMATION
  Report Type: 
  Country: None (occurrence: None)
  Receive Date: 20101230
  Receipt Date: 20100825
  Transmission Date: 20110411
  Serious: Yes (Other)
  Sender: FDA-Public Use
  Company Number: 20100419

PATIENT
  Age: 39 Year
  Sex: Female
  Weight: 65.318 kg

DRUGS (2)
  1. VENOFER [Suspect]
     Indication: GASTRIC BYPASS
     Dosage: 500 MG/ 45 MINUTES INTRAVENOUS
     Route: 042
  2. VENOFER [Suspect]
     Indication: IRON DEFICIENCY ANAEMIA
     Dosage: 500 MG/ 45 MINUTES INTRAVENOUS
     Route: 042

REACTIONS (2)
  - ANAPHYLACTOID REACTION [None]
  - INJECTION SITE PAIN [None]
